FAERS Safety Report 23545687 (Version 1)
Quarter: 2024Q1

REPORT INFORMATION
  Report Type: Spontaneous
  Country: US (occurrence: None)
  Receive Date: 20240218
  Receipt Date: 20240218
  Transmission Date: 20240409
  Serious: Yes (Hospitalization)
  Sender: FDA-Public Use
  Company Number: None

PATIENT
  Age: 60 Year
  Sex: Female
  Weight: 65.25 kg

DRUGS (3)
  1. SULFAMETHOXAZOLE AND TRIMETHOPRIM [Suspect]
     Active Substance: SULFAMETHOXAZOLE\TRIMETHOPRIM
     Indication: Urinary tract infection
     Dosage: OTHER QUANTITY : 6 TABLET(S);?FREQUENCY : TWICE A DAY;?
     Route: 048
     Dates: start: 20240209, end: 20240214
  2. OMEPRAZOLE [Concomitant]
     Active Substance: OMEPRAZOLE
  3. Motrin [Concomitant]

REACTIONS (7)
  - Pain [None]
  - Treatment failure [None]
  - Neuropathy peripheral [None]
  - Malaise [None]
  - Burning sensation [None]
  - Pain in extremity [None]
  - Drug ineffective [None]

NARRATIVE: CASE EVENT DATE: 20240214
